FAERS Safety Report 20031106 (Version 1)
Quarter: 2021Q4

REPORT INFORMATION
  Report Type: Spontaneous
  Country: US (occurrence: US)
  Receive Date: 20211103
  Receipt Date: 20211103
  Transmission Date: 20220304
  Serious: No
  Sender: FDA-Public Use
  Company Number: US-ALLERGAN-2100285US

PATIENT
  Age: 67 Year
  Sex: Female
  Weight: 58.957 kg

DRUGS (1)
  1. VRAYLAR [Suspect]
     Active Substance: CARIPRAZINE
     Indication: Bipolar disorder
     Dosage: 4.5 MG, QD
     Dates: start: 20201008

REACTIONS (1)
  - Dyspnoea exertional [Recovered/Resolved]
